FAERS Safety Report 10102515 (Version 2)
Quarter: 2014Q2

REPORT INFORMATION
  Report Type: Other
  Country: US (occurrence: US)
  Receive Date: 20140424
  Receipt Date: 20140624
  Transmission Date: 20141212
  Serious: Yes (Hospitalization, Other)
  Sender: FDA-Public Use
  Company Number: US-GSKPPD-2014GSK000259

PATIENT
  Sex: Female
  Weight: 79.45 kg

DRUGS (6)
  1. AVANDIA [Suspect]
     Indication: DIABETES MELLITUS
     Dosage: DATES OF AVANDIA USE COULD NOT BE CONFIRMED IN RECORDS REVIEWED.
     Route: 048
  2. AVANDAMET [Suspect]
     Indication: DIABETES MELLITUS
     Dosage: DATES OF AVANDAMET USE COULD NOT BE CONFIRMED IN RECORDS REVIEWED.
  3. MONOPRIL [Concomitant]
  4. COREG [Concomitant]
  5. ALDACTONE [Concomitant]
  6. ASPIRIN [Concomitant]
     Route: 048

REACTIONS (2)
  - Myocardial ischaemia [None]
  - Pulmonary oedema [Recovered/Resolved]
